FAERS Safety Report 9104917 (Version 1)
Quarter: 2013Q1

REPORT INFORMATION
  Report Type: Spontaneous
  Country: GB (occurrence: GB)
  Receive Date: 20130220
  Receipt Date: 20130220
  Transmission Date: 20140127
  Serious: Yes (Death)
  Sender: FDA-Public Use
  Company Number: GB-JNJFOC-20130209177

PATIENT
  Age: 78 Year
  Sex: Male
  Weight: 89 kg

DRUGS (6)
  1. XARELTO [Suspect]
     Indication: CEREBROVASCULAR ACCIDENT PROPHYLAXIS
     Route: 048
     Dates: start: 20121031, end: 20130125
  2. XARELTO [Suspect]
     Indication: ATRIAL FIBRILLATION
     Route: 048
     Dates: start: 20121031, end: 20130125
  3. THIAMINE [Concomitant]
     Route: 065
  4. TAMSULOSIN [Concomitant]
     Route: 065
  5. AMLODIPINE [Concomitant]
     Route: 065
  6. BISOPROLOL [Concomitant]
     Route: 065

REACTIONS (3)
  - Gastrointestinal haemorrhage [Fatal]
  - Haematemesis [Fatal]
  - Syncope [Fatal]
